FAERS Safety Report 4871809-5 (Version None)
Quarter: 2006Q1

REPORT INFORMATION
  Report Type: 
  Country: None (occurrence: None)
  Receive Date: 20060104
  Receipt Date: 20051223
  Transmission Date: 20060701
  Serious: Yes (Other)
  Sender: FDA-Public Use
  Company Number: GB-GLAXOSMITHKLINE-B0405192A

PATIENT
  Age: 69 Year

DRUGS (4)
  1. AMOXICILLIN [Suspect]
     Indication: LOWER RESPIRATORY TRACT INFECTION
     Route: 048
     Dates: start: 20051130, end: 20051130
  2. IRBESARTAN [Concomitant]
     Route: 048
     Dates: start: 20040201
  3. ASPIRIN [Concomitant]
     Route: 048
     Dates: start: 20050401
  4. KLIOVANCE [Concomitant]
     Route: 048

REACTIONS (5)
  - ERYTHEMA [None]
  - HYPOTENSION [None]
  - LOCAL SWELLING [None]
  - PRURITUS [None]
  - SWELLING FACE [None]
